FAERS Safety Report 7423741-0 (Version None)
Quarter: 2011Q2

REPORT INFORMATION
  Report Type: 
  Country: None (occurrence: None)
  Receive Date: 20110411
  Receipt Date: 20110329
  Transmission Date: 20111010
  Serious: Yes (Death, Life-Threatening, Hospitalization, Other)
  Sender: FDA-Public Use
  Company Number: FK201100590

PATIENT
  Age: 74 Year
  Sex: Female

DRUGS (1)
  1. HEPARIN SODIUM [Suspect]
     Indication: COAGULOPATHY

REACTIONS (8)
  - SEPTIC SHOCK [None]
  - MULTI-ORGAN FAILURE [None]
  - CARDIOPULMONARY FAILURE [None]
  - RENAL FAILURE ACUTE [None]
  - SKIN NECROSIS [None]
  - THROMBOCYTOPENIA [None]
  - SKIN EXFOLIATION [None]
  - HEPARIN-INDUCED THROMBOCYTOPENIA [None]
